FAERS Safety Report 8079058-7 (Version None)
Quarter: 2012Q1

REPORT INFORMATION
  Report Type: 
  Country: None (occurrence: None)
  Receive Date: 20120128
  Receipt Date: 20110808
  Transmission Date: 20120608
  Serious: No
  Sender: FDA-Public Use
  Company Number: US-ABBOTT-11P-163-0844734-00

PATIENT
  Age: 50 Year
  Sex: Male

DRUGS (6)
  1. CELEBREX [Concomitant]
     Indication: PSORIATIC ARTHROPATHY
  2. PROTOPIC [Concomitant]
     Indication: PSORIASIS
  3. TEMOVATE [Concomitant]
     Indication: PSORIATIC ARTHROPATHY
  4. HUMIRA [Suspect]
     Indication: PSORIATIC ARTHROPATHY
     Dosage: ONCE WEEKLY
     Dates: start: 20060401
  5. VICODIN [Concomitant]
     Indication: PSORIATIC ARTHROPATHY
  6. TRAMCINOLONE CREAM [Concomitant]
     Indication: PSORIATIC ARTHROPATHY

REACTIONS (1)
  - INJECTION SITE HAEMORRHAGE [None]
